FAERS Safety Report 7339291-6 (Version None)
Quarter: 2011Q1

REPORT INFORMATION
  Report Type: 
  Country: None (occurrence: None)
  Receive Date: 20110308
  Receipt Date: 20110303
  Transmission Date: 20110831
  Serious: Yes (Hospitalization)
  Sender: FDA-Public Use
  Company Number: US-CEPHALON-2011000551

PATIENT
  Sex: Male
  Weight: 115 kg

DRUGS (4)
  1. RITUXIMAB [Suspect]
     Indication: FOLLICLE CENTRE LYMPHOMA, FOLLICULAR GRADE I, II, III
     Route: 042
     Dates: start: 20110120
  2. BORTEZOMIB [Suspect]
     Indication: FOLLICLE CENTRE LYMPHOMA, FOLLICULAR GRADE I, II, III
     Route: 042
     Dates: start: 20110120
  3. BENDAMUSTINE HCL [Suspect]
     Indication: FOLLICLE CENTRE LYMPHOMA, FOLLICULAR GRADE I, II, III
     Route: 041
     Dates: start: 20110120
  4. ALLOPURINOL [Suspect]
     Indication: PROPHYLAXIS

REACTIONS (2)
  - PYREXIA [None]
  - RASH MACULO-PAPULAR [None]
